FAERS Safety Report 8556898-9 (Version None)
Quarter: 2012Q3

REPORT INFORMATION
  Report Type: 
  Country: None (occurrence: None)
  Receive Date: 20120801
  Receipt Date: 20120724
  Transmission Date: 20120928
  Serious: Yes (Hospitalization, Other)
  Sender: FDA-Public Use
  Company Number: JP-VERTEX PHARMACEUTICALS INC.-AE-2012-008485

PATIENT
  Age: 63 Year
  Sex: Male

DRUGS (12)
  1. JANUVIA [Concomitant]
     Route: 048
  2. TELAVIC (TELAPREVIR) [Suspect]
     Indication: HEPATITIS C
     Route: 048
     Dates: start: 20120410, end: 20120412
  3. REBETOL [Concomitant]
     Indication: HEPATITIS C
     Route: 048
     Dates: start: 20120410, end: 20120430
  4. TELAVIC (TELAPREVIR) [Suspect]
     Route: 048
     Dates: start: 20120413, end: 20120525
  5. METFORMIN HCL [Concomitant]
     Route: 048
  6. PEGINTERFERON ALFA-2B [Concomitant]
     Route: 058
     Dates: start: 20120410, end: 20120525
  7. REBETOL [Concomitant]
     Route: 048
     Dates: start: 20120522, end: 20120525
  8. REBETOL [Concomitant]
     Route: 048
     Dates: start: 20120619
  9. REBETOL [Concomitant]
     Route: 048
     Dates: start: 20120501, end: 20120521
  10. PEGINTERFERON ALFA-2B [Concomitant]
     Route: 058
     Dates: start: 20120619
  11. NORVASC [Concomitant]
     Route: 048
  12. LANSOPRAZOLE [Concomitant]
     Route: 048

REACTIONS (2)
  - LOSS OF CONSCIOUSNESS [None]
  - ANAEMIA [None]
